FAERS Safety Report 5924196-5 (Version None)
Quarter: 2008Q4

REPORT INFORMATION
  Report Type: 
  Country: None (occurrence: None)
  Receive Date: 20081020
  Receipt Date: 20081008
  Transmission Date: 20090506
  Serious: Yes (Hospitalization, Other)
  Sender: FDA-Public Use
  Company Number: US-ELI_LILLY_AND_COMPANY-US200810001944

PATIENT
  Age: 77 Year
  Sex: Female

DRUGS (1)
  1. FORTEO [Suspect]
     Dosage: UNK, UNK
     Dates: start: 20070401

REACTIONS (4)
  - DECREASED ACTIVITY [None]
  - INTERVERTEBRAL DISC DISORDER [None]
  - MOBILITY DECREASED [None]
  - SURGERY [None]
